FAERS Safety Report 16187260 (Version 1)
Quarter: 2019Q2

REPORT INFORMATION
  Report Type: Report from Study
  Country: None (occurrence: CA)
  Receive Date: 20190411
  Receipt Date: 20190411
  Transmission Date: 20190711
  Serious: Yes (Other)
  Sender: FDA-Public Use
  Company Number: CA-ABBVIE-19K-028-2739043-00

PATIENT
  Sex: Female

DRUGS (3)
  1. HUMIRA [Suspect]
     Active Substance: ADALIMUMAB
     Indication: CROHN^S DISEASE
     Route: 058
     Dates: start: 20151119
  2. METHOTREXATE. [Concomitant]
     Active Substance: METHOTREXATE
     Indication: SYSTEMIC LUPUS ERYTHEMATOSUS
  3. HUMIRA [Suspect]
     Active Substance: ADALIMUMAB
     Route: 058

REACTIONS (12)
  - Weight decreased [Not Recovered/Not Resolved]
  - Abdominal pain [Not Recovered/Not Resolved]
  - Ulcer haemorrhage [Unknown]
  - Blood iron decreased [Unknown]
  - Frequent bowel movements [Unknown]
  - Therapeutic response shortened [Unknown]
  - Fatigue [Not Recovered/Not Resolved]
  - Impaired quality of life [Not Recovered/Not Resolved]
  - Impaired work ability [Not Recovered/Not Resolved]
  - Gastrointestinal ulcer [Unknown]
  - Systemic lupus erythematosus [Unknown]
  - Haemorrhoids [Not Recovered/Not Resolved]

NARRATIVE: CASE EVENT DATE: 20190404
